FAERS Safety Report 11169877 (Version 1)
Quarter: 2015Q2

REPORT INFORMATION
  Report Type: Report from Study
  Country: US (occurrence: US)
  Receive Date: 20150607
  Receipt Date: 20150607
  Transmission Date: 20150821
  Serious: No
  Sender: FDA-Public Use
  Company Number: US-009507513-1506USA000655

PATIENT
  Sex: Male

DRUGS (1)
  1. KEYTRUDA [Suspect]
     Active Substance: PEMBROLIZUMAB
     Indication: METASTATIC RENAL CELL CARCINOMA
     Dosage: UNK

REACTIONS (1)
  - Adverse event [Unknown]
